FAERS Safety Report 14121002 (Version 1)
Quarter: 2017Q4

REPORT INFORMATION
  Report Type: Spontaneous
  Country: IT (occurrence: IT)
  Receive Date: 20171024
  Receipt Date: 20171024
  Transmission Date: 20180321
  Serious: Yes (Hospitalization)
  Sender: FDA-Public Use
  Company Number: IT-ELI_LILLY_AND_COMPANY-IT201710005826

PATIENT
  Age: 71 Year
  Sex: Female

DRUGS (3)
  1. DELORAZEPAM [Concomitant]
     Active Substance: DELORAZEPAM
     Dosage: 10 GTT, UNKNOWN
     Route: 048
  2. OLANZAPINE PAMOATE [Suspect]
     Active Substance: OLANZAPINE PAMOATE
     Indication: BIPOLAR DISORDER
     Dosage: 300 MG, CYCLICAL
     Route: 030
     Dates: start: 20170905, end: 20171004
  3. DEPAKIN [Concomitant]
     Active Substance: VALPROATE SODIUM
     Dosage: 500 MG, UNKNOWN
     Route: 048

REACTIONS (10)
  - Disorientation [Unknown]
  - Tachycardia [Unknown]
  - Speech disorder [Unknown]
  - Irritability [Unknown]
  - Somnolence [Unknown]
  - Tachypnoea [Unknown]
  - Gait disturbance [Unknown]
  - Dizziness [Unknown]
  - Blood pressure increased [Unknown]
  - Confusional state [Unknown]

NARRATIVE: CASE EVENT DATE: 20171004
